FAERS Safety Report 8301422-9 (Version None)
Quarter: 2012Q2

REPORT INFORMATION
  Report Type: 
  Country: None (occurrence: None)
  Receive Date: 20120420
  Receipt Date: 20120413
  Transmission Date: 20120825
  Serious: Yes (Hospitalization)
  Sender: FDA-Public Use
  Company Number: IE-UCBSA-052517

PATIENT
  Age: 54 Year
  Sex: Female

DRUGS (1)
  1. CIMZIA [Suspect]
     Indication: RHEUMATOID ARTHRITIS
     Dosage: EVERY TWO WEEKS X 3, 200 MG MAINTENANCE THEREAFTER
     Route: 058
     Dates: start: 20120202

REACTIONS (2)
  - LOWER RESPIRATORY TRACT INFECTION [None]
  - DYSPNOEA [None]
